FAERS Safety Report 5546452-5 (Version None)
Quarter: 2007Q4

REPORT INFORMATION
  Report Type: 
  Country: None (occurrence: None)
  Receive Date: 20071211
  Receipt Date: 20070208
  Transmission Date: 20080405
  Serious: No
  Sender: FDA-Public Use
  Company Number: US-AMGEN-KDL210561

PATIENT
  Sex: Female

DRUGS (2)
  1. ENBREL [Suspect]
     Indication: PSORIASIS
     Route: 058
     Dates: start: 20060808
  2. METHOTREXATE [Concomitant]

REACTIONS (5)
  - INJECTION SITE REACTION [None]
  - MALAISE [None]
  - MIGRAINE [None]
  - NASAL CONGESTION [None]
  - RHINORRHOEA [None]
